FAERS Safety Report 11521094 (Version 1)
Quarter: 2015Q3

REPORT INFORMATION
  Report Type: Spontaneous
  Country: US (occurrence: None)
  Receive Date: 20150917
  Receipt Date: 20150917
  Transmission Date: 20151125
  Serious: No
  Sender: FDA-Public Use
  Company Number: None

PATIENT
  Age: 28 Year
  Sex: Female
  Weight: 63.5 kg

DRUGS (7)
  1. VITAMIN D [Concomitant]
     Active Substance: CHOLECALCIFEROL
  2. GENERAL WOMEN^S DAILY [Concomitant]
  3. SERTRALINE [Suspect]
     Active Substance: SERTRALINE HYDROCHLORIDE
     Indication: DEPRESSION
     Dosage: 125 MG  ONCE DAILY TAKEN BY MOUTH
     Route: 048
     Dates: start: 20150716, end: 20150916
  4. IRON SUPPLEMENT [Concomitant]
     Active Substance: IRON
  5. POTASSIUM [Concomitant]
     Active Substance: POTASSIUM
  6. TRETINOIN. [Concomitant]
     Active Substance: TRETINOIN
  7. IED [Concomitant]

REACTIONS (4)
  - Panic attack [None]
  - Product quality issue [None]
  - Crying [None]
  - Product substitution issue [None]

NARRATIVE: CASE EVENT DATE: 20150901
